FAERS Safety Report 9457704 (Version 1)
Quarter: 2013Q3

REPORT INFORMATION
  Report Type: Spontaneous
  Country: JP (occurrence: JP)
  Receive Date: 20130814
  Receipt Date: 20130814
  Transmission Date: 20140515
  Serious: Yes (Death)
  Sender: FDA-Public Use
  Company Number: JP-COVIDIEN/TYCO HEALTHCARE/MALLINCKRODT-T201304102

PATIENT
  Age: 61 Year
  Sex: Male
  Weight: 98 kg

DRUGS (16)
  1. METHADONE [Suspect]
     Indication: CANCER PAIN
     Dosage: 15 MG, QD
     Route: 048
     Dates: start: 20130724, end: 20130728
  2. METHADONE [Suspect]
     Dosage: 30 MG, QD
     Route: 048
     Dates: start: 20130729, end: 20130731
  3. METHADONE [Suspect]
     Dosage: 20 MG, QD
     Route: 048
     Dates: start: 20130801, end: 20130803
  4. METHADONE [Suspect]
     Dosage: 5 MG, SINGLE
     Route: 048
     Dates: start: 20130724, end: 20130728
  5. METHADONE [Suspect]
     Dosage: 10 MG, SINGLE
     Route: 048
     Dates: start: 20130729, end: 20130731
  6. METHADONE [Suspect]
     Dosage: 15 MG, SINGLE
     Route: 048
     Dates: start: 20130801, end: 20130803
  7. OXINORM                            /00045603/ [Concomitant]
     Dosage: 10 MG, PRN
     Route: 048
     Dates: start: 20130723
  8. AMARYL [Concomitant]
     Dosage: 1 MG, UNK
     Route: 048
  9. PREMINENT [Concomitant]
     Dosage: 1 DF
     Route: 048
  10. RINDERON                           /00008501/ [Concomitant]
     Dosage: 1 MG, UNK
     Route: 048
  11. MUCODYNE [Concomitant]
     Dosage: 1500 MG, UNK
     Route: 048
  12. MAGMITT [Concomitant]
     Dosage: 1500 MG, UNK
     Route: 048
  13. LOXOPROFEN SODIUM [Concomitant]
     Dosage: 180 MG, UNK
     Route: 048
  14. WYPAX [Concomitant]
     Dosage: 1 MG, UNK
     Route: 048
  15. LANSOPRAZOLE [Concomitant]
     Dosage: 15 MG, UNK
     Route: 048
  16. VOLTAREN                           /00372301/ [Concomitant]
     Dosage: 50 MG, UNK
     Route: 054

REACTIONS (2)
  - Lung neoplasm malignant [Fatal]
  - Drug ineffective [Unknown]
